FAERS Safety Report 6657111-X (Version None)
Quarter: 2010Q1

REPORT INFORMATION
  Report Type: 
  Country: None (occurrence: None)
  Receive Date: 20100330
  Receipt Date: 20100319
  Transmission Date: 20100710
  Serious: Yes (Hospitalization)
  Sender: FDA-Public Use
  Company Number: US-JNJFOC-20100306133

PATIENT
  Sex: Female
  Weight: 80.74 kg

DRUGS (9)
  1. FENTANYL-100 [Suspect]
     Indication: BACK PAIN
     Dosage: NDC NUMBER# 0781-7114-55
     Route: 062
  2. FENTANYL-100 [Suspect]
     Dosage: 0781-7244-55
     Route: 062
  3. ULTRAM [Concomitant]
     Indication: PAIN
     Route: 048
  4. SINGULAIR [Concomitant]
     Indication: ASTHMA
     Route: 048
  5. ALTACE [Concomitant]
     Indication: HYPERTENSION
     Route: 048
  6. NORVASC [Concomitant]
     Indication: HYPERTENSION
     Route: 048
  7. LANTUS [Concomitant]
     Indication: DIABETES MELLITUS
     Dosage: 60 UNITS
     Route: 058
  8. HUMALOG [Concomitant]
     Indication: DIABETES MELLITUS
     Dosage: 25 UNITS
     Route: 058
  9. LYRICA [Concomitant]
     Indication: NEUROPATHY PERIPHERAL
     Route: 048

REACTIONS (3)
  - NAUSEA [None]
  - NEUROPATHIC ARTHROPATHY [None]
  - PRODUCT QUALITY ISSUE [None]
